FAERS Safety Report 25333836 (Version 2)
Quarter: 2025Q2

REPORT INFORMATION
  Report Type: Other
  Country: GB (occurrence: GB)
  Receive Date: 20250520
  Receipt Date: 20250521
  Transmission Date: 20250717
  Serious: Yes (Other)
  Sender: GLENMARK
  Company Number: GB-MHRA-TPP35863683C8887069YC1746545063105

PATIENT
  Age: 67 Year
  Sex: Male
  Weight: 97 kg

DRUGS (10)
  1. DAPAGLIFLOZIN [Suspect]
     Active Substance: DAPAGLIFLOZIN
     Indication: Cardiac disorder
     Dosage: 10 MILLIGRAM, OD (ONE TABLET DAILY (FOR HEART)
     Route: 065
     Dates: start: 20240912
  2. FLUCONAZOLE [Concomitant]
     Active Substance: FLUCONAZOLE
     Indication: Antifungal treatment
     Route: 065
     Dates: start: 20250502, end: 20250503
  3. MICONAZOLE [Concomitant]
     Active Substance: MICONAZOLE
     Indication: Ill-defined disorder
     Dosage: UNK UNK, BID (APPLY TO THE AFFECTED AREA TWICE DAILY)
     Route: 065
     Dates: start: 20250502
  4. ACETAMINOPHEN [Concomitant]
     Active Substance: ACETAMINOPHEN
     Indication: Ill-defined disorder
     Dosage: 2 DOSAGE FORM, QID (TWO TABLETS UP TO FOUR TIMES A DAY AS NEEDED (PRN)
     Route: 065
     Dates: start: 20240312
  5. ATORVASTATIN [Concomitant]
     Active Substance: ATORVASTATIN
     Indication: Ill-defined disorder
     Dosage: UNK UNK, OD (TAKE ONE DAILY)
     Route: 065
     Dates: start: 20240912
  6. BISOPROLOL [Concomitant]
     Active Substance: BISOPROLOL
     Indication: Ill-defined disorder
     Dosage: 1 DOSAGE FORM, OD (ONE TABLET DAILY (BETA-BLOCKER TO SLOW ATRIAL F...)
     Route: 065
     Dates: start: 20240912
  7. DIGOXIN [Concomitant]
     Active Substance: DIGOXIN
     Indication: Atrial fibrillation
     Dosage: 1 DOSAGE FORM, OD (ONE TABLET DAILY (TO SLOW ATRIAL FIBRILLATION)
     Route: 065
     Dates: start: 20240912, end: 20250324
  8. EPLERENONE [Concomitant]
     Active Substance: EPLERENONE
     Indication: Ill-defined disorder
     Dosage: 1 DOSAGE FORM, OD (ONE TABLET A DAY)
     Route: 065
     Dates: start: 20240912
  9. APIXABAN [Concomitant]
     Active Substance: APIXABAN
     Indication: Ill-defined disorder
     Dosage: 1 DOSAGE FORM, BID (ONE TABLET TWICE A DAY (ANTI-CLOTTING)
     Route: 065
     Dates: start: 20240912
  10. SACUBITRIL [Concomitant]
     Active Substance: SACUBITRIL
     Indication: Ill-defined disorder
     Dosage: UNK UNK, BID (ONE TO BE TAKEN TWICE DAILY)
     Route: 065
     Dates: start: 20241206

REACTIONS (2)
  - Infection [Unknown]
  - Balanitis candida [Recovered/Resolved]
